FAERS Safety Report 5778674-2 (Version None)
Quarter: 2008Q2

REPORT INFORMATION
  Report Type: 
  Country: None (occurrence: None)
  Receive Date: 20080619
  Receipt Date: 20080609
  Transmission Date: 20081010
  Serious: Yes (Other)
  Sender: FDA-Public Use
  Company Number: B0524729A

PATIENT
  Age: 80 Year
  Sex: Male
  Weight: 79 kg

DRUGS (9)
  1. ARIXTRA [Suspect]
     Indication: THROMBOSIS PROPHYLAXIS
     Dosage: 2.5MG PER DAY
     Route: 058
     Dates: start: 20080404, end: 20080410
  2. AUGMENTIN '125' [Concomitant]
     Route: 065
  3. OFLOCET [Concomitant]
     Route: 065
  4. ASPIRIN [Concomitant]
     Dosage: 160MG PER DAY
     Route: 048
  5. HEMIGOXINE NATIVELLE [Concomitant]
     Dosage: .125MG PER DAY
     Route: 048
  6. PERINDOPRIL ERBUMINE [Concomitant]
     Dosage: 2MG PER DAY
     Route: 048
  7. ALDACTONE [Concomitant]
     Dosage: 25MG PER DAY
     Route: 048
  8. LASIX [Concomitant]
     Dosage: 20MG PER DAY
     Route: 048
  9. CORTICOIDS [Concomitant]
     Route: 065

REACTIONS (3)
  - GINGIVAL BLEEDING [None]
  - GOUT [None]
  - HAEMOGLOBIN DECREASED [None]
